FAERS Safety Report 4908098-9 (Version None)
Quarter: 2006Q1

REPORT INFORMATION
  Report Type: 
  Country: None (occurrence: None)
  Receive Date: 20060113
  Receipt Date: 20050926
  Transmission Date: 20060701
  Serious: No
  Sender: FDA-Public Use
  Company Number: 2005SP003254

PATIENT
  Age: 64 Year
  Sex: Female
  Weight: 90.7194 kg

DRUGS (4)
  1. LUNESTA [Suspect]
     Indication: INSOMNIA
     Dosage: 3 MG ; ORAL
     Route: 048
     Dates: start: 20050601
  2. LUNESTA [Suspect]
     Indication: PAIN
     Dosage: 3 MG ; ORAL
     Route: 048
     Dates: start: 20050601
  3. TENORMIN [Concomitant]
  4. OXYCONTIN [Concomitant]

REACTIONS (1)
  - INSOMNIA [None]
